FAERS Safety Report 24820040 (Version 1)
Quarter: 2025Q1

REPORT INFORMATION
  Report Type: Spontaneous
  Country: US (occurrence: US)
  Receive Date: 20250108
  Receipt Date: 20250108
  Transmission Date: 20250408
  Serious: Yes (Death, Other)
  Sender: DR REDDYS
  Company Number: US-DRL-USA-USA/2025/01/000247

PATIENT
  Age: 24 Year
  Sex: Female

DRUGS (3)
  1. BORTEZOMIB [Suspect]
     Active Substance: BORTEZOMIB
     Indication: Natural killer-cell leukaemia
  2. GANCICLOVIR [Suspect]
     Active Substance: GANCICLOVIR
     Indication: Natural killer-cell leukaemia
  3. ALEMTUZUMAB [Suspect]
     Active Substance: ALEMTUZUMAB
     Indication: Natural killer-cell leukaemia

REACTIONS (4)
  - Septic shock [Fatal]
  - Disseminated intravascular coagulation [Fatal]
  - Condition aggravated [Fatal]
  - Drug ineffective for unapproved indication [Fatal]
